FAERS Safety Report 12204343 (Version 1)
Quarter: 2016Q1

REPORT INFORMATION
  Report Type: Spontaneous
  Country: US (occurrence: None)
  Receive Date: 20160322
  Receipt Date: 20160322
  Transmission Date: 20160526
  Serious: No
  Sender: FDA-Public Use
  Company Number: None

PATIENT
  Sex: Male

DRUGS (1)
  1. FENTANYL. [Suspect]
     Active Substance: FENTANYL

REACTIONS (12)
  - Generalised tonic-clonic seizure [None]
  - Acute kidney injury [None]
  - Dialysis [None]
  - Accidental overdose [None]
  - Product quality issue [None]
  - Craniocerebral injury [None]
  - Unresponsive to stimuli [None]
  - Fall [None]
  - Coma [None]
  - Hepatic function abnormal [None]
  - Cardiac failure acute [None]
  - Respiratory failure [None]
